FAERS Safety Report 5364804-3 (Version None)
Quarter: 2007Q2

REPORT INFORMATION
  Report Type: 
  Country: None (occurrence: None)
  Receive Date: 20070621
  Receipt Date: 20070618
  Transmission Date: 20071010
  Serious: Yes (Other)
  Sender: FDA-Public Use
  Company Number: PHEH2007US08561

PATIENT
  Age: 9 Year
  Sex: Female

DRUGS (4)
  1. TRILEPTAL [Suspect]
     Indication: MOOD SWINGS
     Dosage: 1200 MG, QD
     Dates: start: 20020101
  2. TRILEPTAL [Suspect]
     Dosage: 600 MG, BID
     Route: 048
     Dates: start: 20060501
  3. LITHIUM CARBONATE [Concomitant]
     Dosage: UNK, BID
  4. RISPERDAL [Concomitant]
     Dosage: 0.25 MG, QHS

REACTIONS (4)
  - DIPLOPIA [None]
  - MYOPIA [None]
  - VISUAL ACUITY REDUCED [None]
  - VISUAL DISTURBANCE [None]
